FAERS Safety Report 10336073 (Version 1)
Quarter: 2014Q3

REPORT INFORMATION
  Report Type: Spontaneous
  Country: US (occurrence: US)
  Receive Date: 20140723
  Receipt Date: 20140723
  Transmission Date: 20150326
  Serious: No
  Sender: FDA-Public Use
  Company Number: US-BRISTOL-MYERS SQUIBB COMPANY-19646868

PATIENT
  Age: 77 Year
  Sex: Female
  Weight: 52.61 kg

DRUGS (2)
  1. COUMADIN [Suspect]
     Active Substance: WARFARIN SODIUM
     Dosage: 1DF=2.5MG AND 5MG. 2.5MG TWO DAYS A WEEK AND 5MG FIVE DAYS A WEEK.
     Dates: start: 20130616
  2. DIGOXIN. [Concomitant]
     Active Substance: DIGOXIN

REACTIONS (2)
  - International normalised ratio abnormal [Unknown]
  - Tinnitus [Unknown]
